FAERS Safety Report 7530985-6 (Version None)
Quarter: 2011Q2

REPORT INFORMATION
  Report Type: 
  Country: None (occurrence: None)
  Receive Date: 20110608
  Receipt Date: 20090930
  Transmission Date: 20111010
  Serious: Yes (Hospitalization, Other)
  Sender: FDA-Public Use
  Company Number: US-BAYER-200934526NA

PATIENT
  Age: 62 Year
  Sex: Male
  Weight: 113.83 kg

DRUGS (21)
  1. NITROFURANTOIN [Concomitant]
     Dosage: 50 MG FOUR TIMES A DAY WITH FOOD
     Route: 048
  2. INSULIN [Concomitant]
     Dosage: UNK
     Dates: start: 20060228
  3. ATENOLOL [Concomitant]
     Dosage: 25 MG, QD
     Route: 048
  4. SIMVASTATIN [Concomitant]
     Dosage: 40 MG
     Route: 048
  5. LISINOPRIL [Concomitant]
     Dosage: 40 MG
     Route: 048
  6. CITALOPRAM HYDROBROMIDE [Concomitant]
     Dosage: 40 MG
     Route: 048
  7. HEPARIN [Concomitant]
     Dosage: UNK
     Dates: start: 20060228, end: 20060228
  8. TRASYLOL [Suspect]
     Dosage: 200 ML THEN 50 ML INFUSION
     Route: 042
     Dates: start: 20060228
  9. NITROGLYCERIN [Concomitant]
     Dosage: UNK
     Dates: start: 20060228, end: 20060228
  10. VERSED [Concomitant]
     Dosage: 1.5
     Route: 042
  11. PHENAZOPYRIDINE HCL TAB [Concomitant]
     Dosage: THREE TIMES OF DAY
     Route: 048
  12. TRASYLOL [Suspect]
     Indication: CORONARY ARTERY BYPASS
     Dosage: 1 ML INITIAL TEST DOSE
     Route: 042
     Dates: start: 20060228
  13. ACETYLSALICYLIC ACID SRT [Concomitant]
     Dosage: 81 MG
     Route: 048
  14. COUMADIN [Concomitant]
     Dosage: 2 MG
     Route: 048
  15. DOXAZOSIN MESYLATE [Concomitant]
     Dosage: 4 MG
     Route: 048
  16. HYDROCHLOROTHIAZIDE [Concomitant]
     Dosage: 25 MG
     Route: 048
  17. DOBUTAMINE HYDROCHLORIDE [Concomitant]
     Dosage: UNK
     Dates: start: 20060228, end: 20060228
  18. NICARDIPINE HCL [Concomitant]
     Dosage: UNK
     Dates: start: 20060228, end: 20060228
  19. VANCOMYCIN [Concomitant]
     Dosage: UNK
     Dates: start: 20060228, end: 20060228
  20. FENTANYL [Concomitant]
     Dosage: UNK
     Dates: start: 20060228, end: 20060228
  21. AMIODARONE HCL [Concomitant]
     Dosage: UNK
     Dates: start: 20060228, end: 20060228

REACTIONS (10)
  - UNEVALUABLE EVENT [None]
  - RENAL IMPAIRMENT [None]
  - INJURY [None]
  - FEAR [None]
  - RENAL FAILURE [None]
  - EMOTIONAL DISTRESS [None]
  - RENAL INJURY [None]
  - PAIN [None]
  - STRESS [None]
  - ANXIETY [None]
